FAERS Safety Report 26028343 (Version 1)
Quarter: 2025Q4

REPORT INFORMATION
  Report Type: Report from Study
  Country: US (occurrence: US)
  Receive Date: 20251111
  Receipt Date: 20251111
  Transmission Date: 20260118
  Serious: Yes (Hospitalization, Other)
  Sender: VERTEX
  Company Number: US-VERTEX PHARMACEUTICALS-2025-013835

PATIENT
  Sex: Male

DRUGS (1)
  1. ALYFTREK [Suspect]
     Active Substance: DEUTIVACAFTOR\TEZACAFTOR\VANZACAFTOR
     Indication: Cystic fibrosis
     Dosage: 1 TABLET (4 MG VANZACAFTOR / 20 MG TEZACAFTOR / 50 MG DEUTIVACAFTOR), TWICE A WEEK
     Route: 048
     Dates: start: 20250422, end: 20250731

REACTIONS (7)
  - Abdominal pain upper [Not Recovered/Not Resolved]
  - Hepatic pain [Recovered/Resolved]
  - Hepatomegaly [Unknown]
  - Cough [Recovered/Resolved]
  - Aspartate aminotransferase increased [Recovered/Resolved]
  - Alanine aminotransferase increased [Recovered/Resolved]
  - Infective pulmonary exacerbation of cystic fibrosis [Recovered/Resolved]

NARRATIVE: CASE EVENT DATE: 20250101
